FAERS Safety Report 14987109 (Version 1)
Quarter: 2018Q2

REPORT INFORMATION
  Report Type: Report from Study
  Country: ES (occurrence: ES)
  Receive Date: 20180608
  Receipt Date: 20180608
  Transmission Date: 20180711
  Serious: Yes (Hospitalization)
  Sender: FDA-Public Use
  Company Number: ES-TEVA-2018-ES-903231

PATIENT
  Age: 67 Year
  Sex: Male

DRUGS (6)
  1. ADALAT GOLD 30 30MG 14 TABLETS [Concomitant]
     Indication: HYPERTENSION
     Dosage: 1-0-0
     Route: 048
     Dates: start: 20140101
  2. ALOPURINOL 100 [Concomitant]
     Dosage: 1 CP DIA
     Route: 048
     Dates: start: 20140101
  3. CEXANE 80 [Concomitant]
     Dosage: 1 AMP
     Route: 058
     Dates: start: 20140101
  4. SODIUM BICARBONATE (125BI) [Concomitant]
     Dates: start: 20140101
  5. ENALAPRIL [Suspect]
     Active Substance: ENALAPRIL
     Indication: HYPERTENSION
     Dosage: 1-0-1
     Route: 048
     Dates: start: 20140101, end: 20170826
  6. SINTROM [Concomitant]
     Active Substance: ACENOCOUMAROL
     Indication: THROMBOSIS PROPHYLAXIS
     Dosage: SP
     Route: 048
     Dates: start: 20140101

REACTIONS (2)
  - Condition aggravated [Recovered/Resolved]
  - Chronic kidney disease [Recovered/Resolved]

NARRATIVE: CASE EVENT DATE: 20170826
